FAERS Safety Report 6035243-7 (Version None)
Quarter: 2009Q1

REPORT INFORMATION
  Report Type: 
  Country: None (occurrence: None)
  Receive Date: 20090109
  Receipt Date: 20081229
  Transmission Date: 20090719
  Serious: Yes (Other)
  Sender: FDA-Public Use
  Company Number: 130788

PATIENT
  Age: 44 Year
  Sex: Female

DRUGS (2)
  1. DOBUTAMINE HCL [Suspect]
     Indication: HIGH FREQUENCY ABLATION
  2. ATROPINE [Suspect]
     Indication: HIGH FREQUENCY ABLATION

REACTIONS (2)
  - PROCEDURAL COMPLICATION [None]
  - STRESS CARDIOMYOPATHY [None]
